FAERS Safety Report 22671477 (Version 4)
Quarter: 2024Q2

REPORT INFORMATION
  Report Type: Report from Study
  Country: CR (occurrence: CR)
  Receive Date: 20230705
  Receipt Date: 20240402
  Transmission Date: 20240716
  Serious: Yes (Life-Threatening, Hospitalization, Other)
  Sender: FDA-Public Use
  Company Number: CR-002147023-NVSC2023CR149763

PATIENT
  Age: 42 Year
  Sex: Female

DRUGS (2)
  1. MAYZENT [Suspect]
     Active Substance: SIPONIMOD
     Indication: Multiple sclerosis
     Dosage: 2 MG, QD (BY MOUTH)
     Route: 048
     Dates: start: 20230315
  2. TIZANIDINE [Concomitant]
     Active Substance: TIZANIDINE
     Indication: Product used for unknown indication
     Dosage: 1 DOSAGE FORM (14 DAYS)
     Route: 065

REACTIONS (13)
  - Drug intolerance [Unknown]
  - Speech disorder [Unknown]
  - Dysphagia [Unknown]
  - Eating disorder [Unknown]
  - Muscle rigidity [Unknown]
  - Dysstasia [Unknown]
  - Multiple sclerosis [Not Recovered/Not Resolved]
  - Insomnia [Unknown]
  - Weight decreased [Unknown]
  - Weight increased [Unknown]
  - Pollakiuria [Unknown]
  - Gait disturbance [Unknown]
  - Malaise [Not Recovered/Not Resolved]

NARRATIVE: CASE EVENT DATE: 20230516
